FAERS Safety Report 5008026-4 (Version None)
Quarter: 2006Q2

REPORT INFORMATION
  Report Type: 
  Country: None (occurrence: None)
  Receive Date: 20060404
  Receipt Date: 20050629
  Transmission Date: 20061013
  Serious: Yes (Other)
  Sender: FDA-Public Use
  Company Number: 2005072340

PATIENT
  Age: 57 Year
  Sex: Female
  Weight: 58.9676 kg

DRUGS (8)
  1. GEODON [Suspect]
     Indication: DEPRESSION
     Dosage: 160 MG (80 MG, 2 IN 1 D), ORAL
     Route: 048
     Dates: start: 20040101
  2. ALL OTHER THERAPEUTIC PRODUCTS (ALL OTHER THERAPEUTIC PRODUCTS) [Suspect]
  3. EFFEXOR [Concomitant]
  4. METHADONE HCL [Concomitant]
  5. KLONOPIN [Concomitant]
  6. NEURONTIN [Concomitant]
  7. ADVAIR DISKUS 100/50 [Concomitant]
  8. FLONASE [Concomitant]

REACTIONS (2)
  - FEELING ABNORMAL [None]
  - WEIGHT INCREASED [None]
